FAERS Safety Report 9134864 (Version 1)
Quarter: 2013Q1

REPORT INFORMATION
  Report Type: Spontaneous
  Country: US (occurrence: US)
  Receive Date: 20130304
  Receipt Date: 20130304
  Transmission Date: 20140127
  Serious: No
  Sender: FDA-Public Use
  Company Number: US-ENDO PHARMACEUTICALS INC.-PERC20110047

PATIENT
  Sex: Male

DRUGS (2)
  1. PERCOCET [Suspect]
     Indication: ARTHRITIS
     Dosage: 15/975 MG
     Route: 048
     Dates: start: 201005
  2. PERCOCET [Suspect]
     Dosage: 30/1950 MG
     Route: 048

REACTIONS (1)
  - Drug screen negative [Unknown]
